FAERS Safety Report 6366737-2 (Version None)
Quarter: 2009Q3

REPORT INFORMATION
  Report Type: 
  Country: None (occurrence: None)
  Receive Date: 20090915
  Receipt Date: 20090907
  Transmission Date: 20100115
  Serious: Yes (Other)
  Sender: FDA-Public Use
  Company Number: 2008SP015615

PATIENT
  Age: 27 Year
  Sex: Male
  Weight: 69 kg

DRUGS (2)
  1. PEG-INTRON [Suspect]
     Indication: HEPATITIS C
     Dosage: 100 MCG, QW; SC
     Route: 058
     Dates: start: 20070927, end: 20080126
  2. REBETOL [Suspect]
     Indication: HEPATITIS C
     Dosage: 800 MG, QD; PO
     Route: 048
     Dates: start: 20070927, end: 20080130

REACTIONS (1)
  - XERODERMA [None]
